FAERS Safety Report 5948612-8 (Version None)
Quarter: 2008Q4

REPORT INFORMATION
  Report Type: 
  Country: None (occurrence: None)
  Receive Date: 20081111
  Receipt Date: 20081031
  Transmission Date: 20090506
  Serious: Yes (Life-Threatening, Hospitalization, Other)
  Sender: FDA-Public Use
  Company Number: JP-MERCK-0804USA06513

PATIENT
  Age: 61 Year
  Sex: Female

DRUGS (3)
  1. FOSAMAX [Suspect]
     Indication: OSTEOPOROSIS
     Route: 048
  2. SLOW-K [Suspect]
     Indication: INTENTIONAL OVERDOSE
     Route: 048
     Dates: start: 20080427
  3. SLOW-K [Suspect]
     Indication: HYPOKALAEMIA
     Route: 048

REACTIONS (7)
  - CARDIO-RESPIRATORY ARREST [None]
  - GASTRITIS HAEMORRHAGIC [None]
  - HYPERKALAEMIA [None]
  - ILEUS [None]
  - INTENTIONAL OVERDOSE [None]
  - SUICIDE ATTEMPT [None]
  - VENTRICULAR FIBRILLATION [None]
